FAERS Safety Report 8186503-5 (Version None)
Quarter: 2012Q1

REPORT INFORMATION
  Report Type: 
  Country: None (occurrence: None)
  Receive Date: 20120302
  Receipt Date: 20120302
  Transmission Date: 20120608
  Serious: No
  Sender: FDA-Public Use
  Company Number: None

PATIENT
  Age: 65 Year
  Sex: Female
  Weight: 51.2565 kg

DRUGS (1)
  1. METAMUCIL-2 [Suspect]
     Dosage: 1 TSP DAILY ORAL
     Route: 048
     Dates: start: 20120201, end: 20120218

REACTIONS (2)
  - DIZZINESS [None]
  - NAUSEA [None]
